FAERS Safety Report 19651481 (Version 1)
Quarter: 2021Q3

REPORT INFORMATION
  Report Type: Report from Study
  Country: CA (occurrence: CA)
  Receive Date: 20210803
  Receipt Date: 20210803
  Transmission Date: 20211014
  Serious: Yes (Other)
  Sender: FDA-Public Use
  Company Number: CA-ACCORD-234139

PATIENT
  Sex: Female

DRUGS (11)
  1. MYCOPHENOLIC ACID. [Suspect]
     Active Substance: MYCOPHENOLIC ACID
     Indication: PRODUCT USED FOR UNKNOWN INDICATION
     Route: 048
  2. NIFEDIPINE. [Concomitant]
     Active Substance: NIFEDIPINE
  3. AZATHIOPRINE. [Suspect]
     Active Substance: AZATHIOPRINE
     Indication: PRODUCT USED FOR UNKNOWN INDICATION
     Route: 065
  4. HYDROXYCHLOROQUINE [Concomitant]
     Active Substance: HYDROXYCHLOROQUINE
  5. PANTOLOC [Concomitant]
     Active Substance: PANTOPRAZOLE SODIUM
  6. ACTEMRA [Suspect]
     Active Substance: TOCILIZUMAB
     Indication: SYSTEMIC SCLERODERMA
     Dosage: 1 EVERY 4 WEEKS
     Route: 042
  7. DOMPERIDONE [Concomitant]
     Active Substance: DOMPERIDONE
  8. ZOPICLONE [Concomitant]
     Active Substance: ZOPICLONE
  9. DESOXIMETASONE. [Concomitant]
     Active Substance: DESOXIMETASONE
  10. CALCIUM [Concomitant]
     Active Substance: CALCIUM
  11. ACTEMRA [Suspect]
     Active Substance: TOCILIZUMAB
     Indication: SYSTEMIC SCLERODERMA
     Dosage: 1 EVERY 4 WEEKS
     Route: 042

REACTIONS (3)
  - Arthritis [Unknown]
  - Arthropathy [Unknown]
  - Drug intolerance [Unknown]
